FAERS Safety Report 6122414-4 (Version None)
Quarter: 2009Q1

REPORT INFORMATION
  Report Type: 
  Country: None (occurrence: None)
  Receive Date: 20090318
  Receipt Date: 20090129
  Transmission Date: 20090719
  Serious: No
  Sender: FDA-Public Use
  Company Number: US-ASTRAZENECA-2009UW02617

PATIENT
  Age: 6 Year
  Sex: Male
  Weight: 26.8 kg

DRUGS (3)
  1. SYMBICORT [Suspect]
     Indication: ASTHMA
     Route: 055
     Dates: start: 20081220
  2. XYZAL [Concomitant]
     Dosage: ONE HALF TEASPOON DAILY
  3. FLONASE [Concomitant]

REACTIONS (2)
  - CONTUSION [None]
  - MOOD SWINGS [None]
